FAERS Safety Report 13913657 (Version 1)
Quarter: 2017Q3

REPORT INFORMATION
  Report Type: Spontaneous
  Country: US (occurrence: US)
  Receive Date: 20170828
  Receipt Date: 20170828
  Transmission Date: 20171127
  Serious: No
  Sender: FDA-Public Use
  Company Number: US-ROCHE-1137569

PATIENT
  Sex: Male
  Weight: 29.7 kg

DRUGS (6)
  1. NUTROPIN [Suspect]
     Active Substance: SOMATROPIN
     Indication: ANAEMIA
  2. NUTROPIN [Suspect]
     Active Substance: SOMATROPIN
     Indication: CHRONIC KIDNEY DISEASE
     Route: 058
  3. PREDNISONE. [Concomitant]
     Active Substance: PREDNISONE
  4. ROCALTROL [Concomitant]
     Active Substance: CALCITRIOL
  5. CYCLOSPORINE. [Concomitant]
     Active Substance: CYCLOSPORINE
  6. BICITRA [Concomitant]
     Active Substance: CITRIC ACID, 1-STEARYL ESTER\SODIUM CITRATE

REACTIONS (2)
  - Blood creatinine increased [Unknown]
  - Anaemia [Unknown]
